FAERS Safety Report 9208217 (Version 1)
Quarter: 2013Q2

REPORT INFORMATION
  Report Type: Spontaneous
  Country: US (occurrence: US)
  Receive Date: 20130403
  Receipt Date: 20130403
  Transmission Date: 20140414
  Serious: No
  Sender: FDA-Public Use
  Company Number: US-009507513-1303USA013674

PATIENT
  Age: 41 Year
  Sex: Female

DRUGS (2)
  1. ZETIA [Suspect]
     Route: 048
  2. ROSUVASTATIN CALCIUM [Concomitant]
     Dosage: UNK

REACTIONS (1)
  - Tendon pain [Recovered/Resolved]
